FAERS Safety Report 6142792-X (Version None)
Quarter: 2009Q1

REPORT INFORMATION
  Report Type: 
  Country: None (occurrence: None)
  Receive Date: 20090331
  Receipt Date: 20080218
  Transmission Date: 20090719
  Serious: Yes (Life-Threatening, Hospitalization)
  Sender: FDA-Public Use
  Company Number: WAES 0802USA04174

PATIENT
  Age: 46 Year
  Sex: Female

DRUGS (2)
  1. CANCIDAS [Suspect]
     Indication: INFECTION
     Dosage: 50 MG/DAILY/IV
     Route: 042
     Dates: start: 20080205, end: 20080211
  2. ZYVOX [Concomitant]

REACTIONS (1)
  - WHITE BLOOD CELL COUNT DECREASED [None]
